FAERS Safety Report 14656409 (Version 4)
Quarter: 2018Q2

REPORT INFORMATION
  Report Type: Spontaneous
  Country: PL (occurrence: PL)
  Receive Date: 20180319
  Receipt Date: 20180426
  Transmission Date: 20180711
  Serious: Yes (Life-Threatening, Hospitalization, Other)
  Sender: FDA-Public Use
  Company Number: PHHY2018PL041142

PATIENT
  Age: 59 Year
  Sex: Female

DRUGS (10)
  1. MEROPENEM. [Suspect]
     Active Substance: MEROPENEM
     Indication: NECROTISING FASCIITIS
     Dosage: UNK
     Route: 041
  2. MEROPENEM. [Suspect]
     Active Substance: MEROPENEM
     Indication: FASCIITIS
     Dosage: WITHDRAWN IN 12 AND 13 DAY OF HOSPITALISATION
     Route: 042
  3. OCTENISEPT [Concomitant]
     Active Substance: OCTENIDINE\PHENOXYETHANOL
     Dosage: UNK
     Route: 065
  4. CLINDAMYCIN. [Suspect]
     Active Substance: CLINDAMYCIN
     Indication: NECROTISING FASCIITIS
     Dosage: 2 ML, UNK
     Route: 041
  5. LINEZOLID. [Suspect]
     Active Substance: LINEZOLID
     Indication: NECROTISING FASCIITIS
     Dosage: 2 MG/ML, UNK
     Route: 042
  6. XYDALBA [Suspect]
     Active Substance: DALBAVANCIN HYDROCHLORIDE
     Indication: FASCIITIS
     Dosage: 1500 MG, UNK
     Route: 065
  7. OCTENISEPT [Concomitant]
     Active Substance: OCTENIDINE\PHENOXYETHANOL
     Indication: SKIN LESION
     Dosage: UNK
     Route: 065
  8. CLINDAMYCIN. [Suspect]
     Active Substance: CLINDAMYCIN
     Indication: FASCIITIS
  9. LINEZOLID. [Suspect]
     Active Substance: LINEZOLID
     Indication: FASCIITIS
     Dosage: WITHDRAWN IN 12 AND 13 DAY OF HOSPITALISATION
     Route: 042
  10. XYDALBA [Suspect]
     Active Substance: DALBAVANCIN HYDROCHLORIDE
     Dosage: WITHDRAWN IN 12 AND 13 DAY OF HOSPITALISATION
     Route: 065

REACTIONS (4)
  - Streptococcal infection [Recovered/Resolved with Sequelae]
  - Clostridium difficile colitis [Recovered/Resolved]
  - Drug ineffective [Unknown]
  - Diarrhoea [Recovered/Resolved]
